FAERS Safety Report 6973043-1 (Version None)
Quarter: 2010Q3

REPORT INFORMATION
  Report Type: 
  Country: None (occurrence: None)
  Receive Date: 20100909
  Receipt Date: 20100825
  Transmission Date: 20110219
  Serious: Yes (Hospitalization)
  Sender: FDA-Public Use
  Company Number: IT-BIOGENIDEC-2010BI027504

PATIENT
  Age: 33 Year
  Sex: Female

DRUGS (4)
  1. TYSABRI [Suspect]
     Indication: RELAPSING-REMITTING MULTIPLE SCLEROSIS
     Route: 042
     Dates: start: 20091014, end: 20100705
  2. GABAPENTINE [Concomitant]
     Route: 048
     Dates: start: 20060110, end: 20100705
  3. BACLOFENE [Concomitant]
     Route: 048
     Dates: start: 20070210, end: 20100705
  4. SERTRALINE HYDROCHLORIDE [Concomitant]
     Route: 048
     Dates: start: 20060510, end: 20100705

REACTIONS (1)
  - CERVIX CARCINOMA STAGE III [None]
